FAERS Safety Report 9075911 (Version 3)
Quarter: 2013Q1

REPORT INFORMATION
  Report Type: Spontaneous
  Country: US (occurrence: US)
  Receive Date: 20130130
  Receipt Date: 20130318
  Transmission Date: 20140127
  Serious: Yes (Hospitalization, Other)
  Sender: FDA-Public Use
  Company Number: US-AMGEN-USASP2013005105

PATIENT
  Age: 24 Year
  Sex: Female
  Weight: 49 kg

DRUGS (2)
  1. ENBREL [Suspect]
     Indication: JUVENILE IDIOPATHIC ARTHRITIS
     Dosage: 50 MG, QWK
     Route: 058
     Dates: start: 20080615, end: 20130118
  2. PREDNISON [Concomitant]
     Indication: ARTHRITIS
     Dosage: 20 MG, QD
     Route: 048
     Dates: start: 20130103

REACTIONS (13)
  - Mastoiditis [Recovered/Resolved]
  - Colitis [Recovered/Resolved]
  - Faecaloma [Recovered/Resolved]
  - Ovarian cyst [Recovering/Resolving]
  - Staphylococcal skin infection [Recovered/Resolved]
  - Arthralgia [Unknown]
  - Arthritis [Unknown]
  - Joint stiffness [Unknown]
  - Lymph node pain [Not Recovered/Not Resolved]
  - Impaired healing [Not Recovered/Not Resolved]
  - Joint effusion [Recovered/Resolved]
  - Lymphadenopathy [Recovering/Resolving]
  - Fungal cystitis [Not Recovered/Not Resolved]
